FAERS Safety Report 4923357-1 (Version None)
Quarter: 2006Q1

REPORT INFORMATION
  Report Type: 
  Country: None (occurrence: None)
  Receive Date: 20060227
  Receipt Date: 20051121
  Transmission Date: 20060701
  Serious: Yes (Hospitalization)
  Sender: FDA-Public Use
  Company Number: PHEH2005US12791

PATIENT
  Age: 62 Year
  Sex: Male

DRUGS (4)
  1. LOTREL [Suspect]
     Indication: HYPERTENSION
     Dosage: 5/20MG, QD
     Route: 048
     Dates: start: 20051111, end: 20051123
  2. TRILEPTAL [Concomitant]
     Dosage: 900MG
  3. AMITRIPTYLINE HCL [Concomitant]
     Dosage: 25MG, BID
  4. PROTONIX [Concomitant]
     Dosage: 40MG

REACTIONS (2)
  - CRANIOTOMY [None]
  - DRUG INEFFECTIVE [None]
